FAERS Safety Report 4818680-5 (Version None)
Quarter: 2005Q4

REPORT INFORMATION
  Report Type: 
  Country: None (occurrence: None)
  Receive Date: 20051102
  Receipt Date: 20051027
  Transmission Date: 20060501
  Serious: Yes (Hospitalization, Other)
  Sender: FDA-Public Use
  Company Number: US-MERCK-0510USA09398

PATIENT
  Age: 77 Year
  Sex: Female

DRUGS (4)
  1. FOSAMAX [Suspect]
     Indication: OSTEOPOROSIS
     Route: 048
     Dates: start: 20050621, end: 20051021
  2. OS-CAL + D [Concomitant]
     Route: 065
  3. ARICEPT [Concomitant]
     Route: 065
  4. DIOVAN [Concomitant]
     Route: 065

REACTIONS (4)
  - ANAEMIA [None]
  - DRUG ADMINISTRATION ERROR [None]
  - DYSPEPSIA [None]
  - TREATMENT NONCOMPLIANCE [None]
